FAERS Safety Report 16110017 (Version 1)
Quarter: 2019Q1

REPORT INFORMATION
  Report Type: Spontaneous
  Country: US (occurrence: US)
  Receive Date: 20190325
  Receipt Date: 20190325
  Transmission Date: 20190418
  Serious: No
  Sender: FDA-Public Use
  Company Number: US-ASTRAZENECA-2019SE33799

PATIENT
  Sex: Female

DRUGS (5)
  1. NORVASC [Concomitant]
     Active Substance: AMLODIPINE BESYLATE
     Indication: BLOOD PRESSURE MEASUREMENT
     Dosage: 10 MG
  2. SYMBICORT [Suspect]
     Active Substance: BUDESONIDE\FORMOTEROL FUMARATE DIHYDRATE
     Dosage: 80/4.5; 2 PUFFS
     Route: 055
     Dates: end: 2015
  3. NORVASC [Concomitant]
     Active Substance: AMLODIPINE BESYLATE
     Indication: BLOOD PRESSURE MEASUREMENT
     Dosage: 5 MG
  4. SYMBICORT [Suspect]
     Active Substance: BUDESONIDE\FORMOTEROL FUMARATE DIHYDRATE
     Dosage: 160/4.5; 2 PUFFS
     Route: 055
     Dates: start: 201902
  5. SYMBICORT [Suspect]
     Active Substance: BUDESONIDE\FORMOTEROL FUMARATE DIHYDRATE
     Dosage: 160/4.5;1 PUFF
     Route: 055

REACTIONS (8)
  - Product dose omission [Unknown]
  - Peripheral swelling [Recovered/Resolved]
  - Memory impairment [Unknown]
  - Paraesthesia [Unknown]
  - Hypoacusis [Unknown]
  - Dyspnoea [Unknown]
  - Urticaria [Not Recovered/Not Resolved]
  - Intentional product misuse [Unknown]
